APPROVED DRUG PRODUCT: JEVTANA KIT
Active Ingredient: CABAZITAXEL
Strength: 60MG/1.5ML (40MG/ML)
Dosage Form/Route: SOLUTION;INTRAVENOUS
Application: N201023 | Product #001 | TE Code: AP
Applicant: SANOFI AVENTIS US INC
Approved: Jun 17, 2010 | RLD: Yes | RS: Yes | Type: RX

PATENTS:
Patent 12453712 | Expires: Oct 27, 2030
Patent 10583110 | Expires: Oct 27, 2030
Patent 10716777 | Expires: Oct 27, 2030
Patent 8927592 | Expires: Oct 27, 2030
Patent 7241907 | Expires: Dec 10, 2025
Patent 8927592*PED | Expires: Apr 27, 2031
Patent 7241907*PED | Expires: Jun 10, 2026
Patent 10583110*PED | Expires: Apr 27, 2031
Patent 10716777*PED | Expires: Apr 27, 2031
Patent 12453712*PED | Expires: Apr 27, 2031